FAERS Safety Report 17727439 (Version 1)
Quarter: 2020Q2

REPORT INFORMATION
  Report Type: Spontaneous
  Country: US (occurrence: US)
  Receive Date: 20200429
  Receipt Date: 20200429
  Transmission Date: 20200714
  Serious: Yes (Death)
  Sender: FDA-Public Use
  Company Number: None

PATIENT
  Age: 68 Year
  Sex: Male
  Weight: 98.88 kg

DRUGS (2)
  1. HYDROXYCHLOROQUINE (HYDROXYCHLOROQUINE SO4 200MG TAB) [Suspect]
     Active Substance: HYDROXYCHLOROQUINE SULFATE
     Indication: CORONAVIRUS INFECTION
     Route: 048
     Dates: start: 20200328, end: 20200408
  2. AZITHROMYCIN (AZITHROMYCIN 500MG/VIL INJ) [Suspect]
     Active Substance: AZITHROMYCIN
     Indication: CORONAVIRUS INFECTION
     Dosage: ?          OTHER STRENGTH:500 MG/VIL;?
     Route: 042
     Dates: start: 20200328, end: 20200402

REACTIONS (4)
  - Renal failure [None]
  - Acute myocardial infarction [None]
  - Cardiac arrest [None]
  - Cardiogenic shock [None]

NARRATIVE: CASE EVENT DATE: 20200423
